FAERS Safety Report 9417098 (Version 1)
Quarter: 2013Q3

REPORT INFORMATION
  Report Type: Spontaneous
  Country: IN (occurrence: IN)
  Receive Date: 20130724
  Receipt Date: 20130724
  Transmission Date: 20140515
  Serious: Yes (Other)
  Sender: FDA-Public Use
  Company Number: IN-SANOFI-AVENTIS-2013SA072229

PATIENT
  Age: 58 Year
  Sex: Male

DRUGS (1)
  1. JEVTANA [Suspect]
     Indication: HORMONE-REFRACTORY PROSTATE CANCER
     Route: 042
     Dates: start: 20130416

REACTIONS (1)
  - Central nervous system lesion [Unknown]
